FAERS Safety Report 16109091 (Version 1)
Quarter: 2019Q1

REPORT INFORMATION
  Report Type: Spontaneous
  Country: US (occurrence: US)
  Receive Date: 20190323
  Receipt Date: 20190323
  Transmission Date: 20190418
  Serious: No
  Sender: FDA-Public Use
  Company Number: US-THERAPEUTICSMD-2019TMD00119

PATIENT
  Age: 63 Year
  Sex: Female
  Weight: 73.47 kg

DRUGS (14)
  1. SONATA [Concomitant]
     Active Substance: ZALEPLON
     Route: 048
  2. ESTRACE [Concomitant]
     Active Substance: ESTRADIOL
     Dosage: PEA SIZE TO VAGINAL OPENING 3-4 TIMES PER WEEK
     Route: 067
  3. LIPITOR [Concomitant]
     Active Substance: ATORVASTATIN CALCIUM
     Route: 048
  4. DEPAKENE [Concomitant]
     Active Substance: VALPROIC ACID
  5. MELATONIN [Concomitant]
     Active Substance: MELATONIN
  6. VITAMIN B-6 [Concomitant]
     Active Substance: PYRIDOXINE
  7. ALIGN [Concomitant]
     Active Substance: BIFIDOBACTERIUM LONGUM SUBSP. INFANTIS
     Route: 048
  8. DEPAKOTE ER [Concomitant]
     Active Substance: DIVALPROEX SODIUM
  9. VITAMIN B12 [Concomitant]
     Active Substance: CYANOCOBALAMIN
  10. CRANBERRY. [Concomitant]
     Active Substance: CRANBERRY
  11. FOLIC ACID. [Concomitant]
     Active Substance: FOLIC ACID
  12. IMVEXXY [Suspect]
     Active Substance: ESTRADIOL
     Indication: ATROPHIC VULVOVAGINITIS
     Dosage: 10 ?G, 3X/WEEK
     Route: 067
     Dates: start: 201901, end: 20190125
  13. CALCIUM [Concomitant]
     Active Substance: CALCIUM
  14. RED YEAST RICE [Concomitant]
     Active Substance: DIETARY SUPPLEMENT

REACTIONS (2)
  - Off label use [Recovered/Resolved]
  - Vision blurred [Recovering/Resolving]

NARRATIVE: CASE EVENT DATE: 201901
